FAERS Safety Report 24754615 (Version 2)
Quarter: 2025Q1

REPORT INFORMATION
  Report Type: Spontaneous
  Country: SI (occurrence: SI)
  Receive Date: 20241219
  Receipt Date: 20250114
  Transmission Date: 20250409
  Serious: Yes (Other)
  Sender: BAYER HEALTHCARE PHARMACEUTICALS INC.
  Company Number: SI-BAYER-2024A175483

PATIENT
  Age: 78 Year
  Sex: Female
  Weight: 63 kg

DRUGS (13)
  1. FINERENONE [Suspect]
     Active Substance: FINERENONE
     Dates: start: 202312
  2. ADALAT [Concomitant]
     Active Substance: NIFEDIPINE
  3. JARDIANCE [Concomitant]
     Active Substance: EMPAGLIFLOZIN
  4. NEBIVOLOL [Concomitant]
     Active Substance: NEBIVOLOL
  5. JANUVIA [Concomitant]
     Active Substance: SITAGLIPTIN PHOSPHATE
  6. CALCIUM CARBONATE [Concomitant]
     Active Substance: CALCIUM CARBONATE
  7. XARELTO [Concomitant]
     Active Substance: RIVAROXABAN
  8. FERROUS SULFATE [Concomitant]
     Active Substance: FERROUS SULFATE
  9. CHOLECALCIFEROL [Concomitant]
     Active Substance: CHOLECALCIFEROL
  10. PERINDOPRIL [Concomitant]
     Active Substance: PERINDOPRIL
  11. PANTOPRAZOLE SODIUM [Concomitant]
     Active Substance: PANTOPRAZOLE SODIUM
  12. ARTELAC UNO [Concomitant]
  13. INDAPAMIDE\PERINDOPRIL ERBUMINE [Concomitant]
     Active Substance: INDAPAMIDE\PERINDOPRIL ERBUMINE

REACTIONS (7)
  - Cataract operation [None]
  - Glomerular filtration rate decreased [Recovered/Resolved]
  - Blood pressure increased [Recovered/Resolved]
  - Renal cyst [Not Recovered/Not Resolved]
  - Kidney enlargement [Not Recovered/Not Resolved]
  - Blood pressure systolic increased [Recovered/Resolved]
  - White coat hypertension [None]

NARRATIVE: CASE EVENT DATE: 20231201
